FAERS Safety Report 20004158 (Version 10)
Quarter: 2024Q2

REPORT INFORMATION
  Report Type: Other
  Country: DE (occurrence: None)
  Receive Date: 20211027
  Receipt Date: 20240508
  Transmission Date: 20240716
  Serious: No
  Sender: FDA-Public Use
  Company Number: DE-ROCHE-2943038

PATIENT
  Age: 39 Year
  Sex: Female

DRUGS (2)
  1. OCREVUS [Suspect]
     Active Substance: OCRELIZUMAB
     Indication: Relapsing-remitting multiple sclerosis
     Dosage: 600 MG 188 DAYS
     Route: 042
     Dates: start: 20210927
  2. OCREVUS [Suspect]
     Active Substance: OCRELIZUMAB
     Dosage: 30/APR/2024 (5TH MAINTENANCE DOSE)
     Route: 042
     Dates: start: 20210927

REACTIONS (17)
  - Dyspnoea [Recovered/Resolved]
  - Influenza like illness [Recovering/Resolving]
  - Paraesthesia [Recovered/Resolved]
  - Sensory disturbance [Recovering/Resolving]
  - Eye pruritus [Recovered/Resolved]
  - Lacrimation increased [Recovered/Resolved]
  - Headache [Recovered/Resolved]
  - Vomiting [Recovered/Resolved]
  - Mental disorder [Recovered/Resolved]
  - Inflammatory marker increased [Not Recovered/Not Resolved]
  - Feeling hot [Recovered/Resolved]
  - Erythema [Recovered/Resolved]
  - Rash [Recovered/Resolved]
  - Fatigue [Recovering/Resolving]
  - Nasopharyngitis [Recovered/Resolved]
  - Depressed mood [Recovered/Resolved]
  - Pain in extremity [Recovered/Resolved]

NARRATIVE: CASE EVENT DATE: 20210927
